FAERS Safety Report 23486531 (Version 3)
Quarter: 2024Q1

REPORT INFORMATION
  Report Type: Spontaneous
  Country: US (occurrence: US)
  Receive Date: 20240206
  Receipt Date: 20240229
  Transmission Date: 20240410
  Serious: No
  Sender: FDA-Public Use
  Company Number: US-002147023-NVSC2024US010581

PATIENT

DRUGS (2)
  1. LOCAMETZ [Suspect]
     Active Substance: PSMA-HBED-CC
     Indication: Product used for unknown indication
     Dosage: UNK
     Route: 065
  2. LOCAMETZ [Suspect]
     Active Substance: PSMA-HBED-CC
     Dosage: UNK
     Route: 065

REACTIONS (1)
  - Vascular access complication [Unknown]
